FAERS Safety Report 21540104 (Version 1)
Quarter: 2022Q4

REPORT INFORMATION
  Report Type: Spontaneous
  Country: PL (occurrence: None)
  Receive Date: 20221102
  Receipt Date: 20221102
  Transmission Date: 20230113
  Serious: Yes (Hospitalization, Other)
  Sender: FDA-Public Use
  Company Number: PL-ROCHE-3206993

PATIENT
  Age: 57 Year
  Sex: Female

DRUGS (1)
  1. OBINUTUZUMAB [Suspect]
     Active Substance: OBINUTUZUMAB
     Indication: Follicular lymphoma
     Dosage: ON 14-15/SEP/2021: PATIENT RECEIVED 1ST DOSE OF OBINUTUZUMAB (DOSE DIVIDED INTO 100 MG + 900 MG)
     Route: 042

REACTIONS (24)
  - Abdominal cavity drainage [Unknown]
  - Peritonitis [Unknown]
  - Parenteral nutrition [Recovered/Resolved]
  - Red blood cell transfusion [Unknown]
  - COVID-19 [Unknown]
  - Pyrexia [Unknown]
  - Night sweats [Unknown]
  - Weight decreased [Unknown]
  - Asthenia [Unknown]
  - COVID-19 [Unknown]
  - Stress cardiomyopathy [Unknown]
  - Renal failure [Unknown]
  - Cardiomyopathy [Unknown]
  - Cachexia [Unknown]
  - General physical health deterioration [Unknown]
  - Dyspnoea [Unknown]
  - Chest discomfort [Unknown]
  - General physical health deterioration [Unknown]
  - Respiratory failure [Unknown]
  - Oxygen therapy [Unknown]
  - Pyrexia [Unknown]
  - Streptococcal infection [Unknown]
  - Inflammatory marker increased [Unknown]
  - Lung neoplasm [Unknown]

NARRATIVE: CASE EVENT DATE: 20210924
